FAERS Safety Report 23721342 (Version 1)
Quarter: 2024Q2

REPORT INFORMATION
  Report Type: Spontaneous
  Country: CN (occurrence: CN)
  Receive Date: 20240409
  Receipt Date: 20240409
  Transmission Date: 20240716
  Serious: Yes (Hospitalization, Other)
  Sender: FDA-Public Use
  Company Number: CN-SHANGHAI JUNSHI BIOSCIENCES CO., LTD.-CN2024009622

PATIENT

DRUGS (6)
  1. TORIPALIMAB [Suspect]
     Active Substance: TORIPALIMAB
     Indication: Nonkeratinising carcinoma of nasopharynx
     Dosage: 240 MG (D1)
     Route: 041
     Dates: start: 20240228, end: 20240228
  2. PACLITAXEL [Suspect]
     Active Substance: PACLITAXEL
     Indication: Nonkeratinising carcinoma of nasopharynx
     Dosage: 0.4 G (D1)
     Route: 041
     Dates: start: 20240228, end: 20240228
  3. CISPLATIN [Suspect]
     Active Substance: CISPLATIN
     Indication: Nonkeratinising carcinoma of nasopharynx
     Dosage: 40 MG (D1-D3), QD
     Route: 041
     Dates: start: 20240228, end: 20240301
  4. SODIUM CHLORIDE [Concomitant]
     Active Substance: SODIUM CHLORIDE
     Indication: Medication dilution
     Dosage: 80 ML (D1)
     Route: 041
     Dates: start: 20240228, end: 20240228
  5. SODIUM CHLORIDE [Concomitant]
     Active Substance: SODIUM CHLORIDE
     Dosage: 100 ML (D1)
     Route: 041
     Dates: start: 20240228, end: 20240228
  6. SODIUM CHLORIDE [Concomitant]
     Active Substance: SODIUM CHLORIDE
     Indication: Medication dilution
     Dosage: 500 ML (D1-D3), QD
     Route: 041
     Dates: start: 20240228, end: 20240301

REACTIONS (3)
  - White blood cell count decreased [Recovering/Resolving]
  - Neutrophil count decreased [Recovering/Resolving]
  - Diarrhoea [Recovering/Resolving]

NARRATIVE: CASE EVENT DATE: 20240305
